FAERS Safety Report 7359882-6 (Version None)
Quarter: 2011Q1

REPORT INFORMATION
  Report Type: 
  Country: None (occurrence: None)
  Receive Date: 20110317
  Receipt Date: 20110309
  Transmission Date: 20110831
  Serious: Yes (Other)
  Sender: FDA-Public Use
  Company Number: JP-B.I. PHARMACEUTICALS,INC./RIDGEFIELD-2010-BP-14614NB

PATIENT
  Sex: Male
  Weight: 45.8 kg

DRUGS (6)
  1. SEDES G [Concomitant]
     Dosage: 1DF
     Route: 048
     Dates: start: 20101012
  2. PARIET [Concomitant]
     Dosage: 1DF
     Route: 048
     Dates: start: 20101012
  3. MICOMBI COMBINATION [Suspect]
     Indication: HYPERTENSION
     Dosage: 1DF
     Route: 048
     Dates: start: 20101122, end: 20101201
  4. ALDACTONE [Suspect]
     Indication: MINERAL SUPPLEMENTATION
     Dosage: 1DF
     Route: 048
     Dates: start: 20101122, end: 20101201
  5. AMLODIPINE [Concomitant]
     Dosage: 7.5 MG
     Route: 048
     Dates: start: 20101126
  6. MUCOSTA [Concomitant]
     Dosage: 1DF
     Route: 048
     Dates: start: 20101012

REACTIONS (2)
  - DEHYDRATION [None]
  - HYPONATRAEMIA [None]
